FAERS Safety Report 16300774 (Version 1)
Quarter: 2019Q2

REPORT INFORMATION
  Report Type: Spontaneous
  Country: US (occurrence: US)
  Receive Date: 20190510
  Receipt Date: 20190510
  Transmission Date: 20190711
  Serious: Yes (Other)
  Sender: FDA-Public Use
  Company Number: US-009507513-1905USA001525

PATIENT
  Sex: Male

DRUGS (1)
  1. KEYTRUDA [Suspect]
     Active Substance: PEMBROLIZUMAB
     Indication: SQUAMOUS CELL CARCINOMA OF HEAD AND NECK
     Dosage: UNK
     Dates: start: 20141021, end: 20161021

REACTIONS (5)
  - Arthralgia [Unknown]
  - Gallbladder enlargement [Unknown]
  - Malaise [Unknown]
  - Gluten sensitivity [Unknown]
  - Fatigue [Unknown]
